FAERS Safety Report 22022341 (Version 1)
Quarter: 2023Q1

REPORT INFORMATION
  Report Type: Spontaneous
  Country: US (occurrence: US)
  Receive Date: 20230222
  Receipt Date: 20230222
  Transmission Date: 20230418
  Serious: Yes (Other)
  Sender: FDA-Public Use
  Company Number: US-002147023-NVSC2023US038309

PATIENT
  Sex: Female

DRUGS (1)
  1. KYMRIAH [Suspect]
     Active Substance: TISAGENLECLEUCEL
     Indication: Acute lymphocytic leukaemia
     Dosage: 22 ML, ONCE/SINGLE (0.2-5.0X10^6 CAR POSITIVE VIABLE T-CELL/KG BODY WEIGHT)
     Route: 042
     Dates: start: 20220621

REACTIONS (1)
  - Post-depletion B-cell recovery [Unknown]
